FAERS Safety Report 14424259 (Version 6)
Quarter: 2018Q2

REPORT INFORMATION
  Report Type: Spontaneous
  Country: IT (occurrence: IT)
  Receive Date: 20180123
  Receipt Date: 20180607
  Transmission Date: 20180711
  Serious: Yes (Other)
  Sender: FDA-Public Use
  Company Number: IT-BAXTER-2018BAX001640

PATIENT
  Age: 78 Year
  Sex: Male
  Weight: 80 kg

DRUGS (26)
  1. DILATREND [Suspect]
     Active Substance: CARVEDILOL
     Dosage: 6.25 MG, BID (EVERY 12 HOURS)
     Route: 065
  2. RIVAROXABAN [Suspect]
     Active Substance: RIVAROXABAN
     Route: 065
  3. DIRETIF 10 MG/ML SOLUZIONE INIETTABILE [Suspect]
     Active Substance: FUROSEMIDE
     Indication: PRODUCT USED FOR UNKNOWN INDICATION
     Route: 065
  4. DILATREND [Suspect]
     Active Substance: CARVEDILOL
     Indication: PRODUCT USED FOR UNKNOWN INDICATION
     Dosage: 12.5 MG, BID
     Route: 065
  5. DILATREND [Suspect]
     Active Substance: CARVEDILOL
     Dosage: 25 MG AT THE MORNING AND 12.5 MG AT THE EVENING
     Route: 065
  6. VALSARTAN. [Suspect]
     Active Substance: VALSARTAN
     Indication: PRODUCT USED FOR UNKNOWN INDICATION
     Route: 065
  7. TIOTROPIUM [Suspect]
     Active Substance: TIOTROPIUM
     Indication: PRODUCT USED FOR UNKNOWN INDICATION
     Dosage: DOSE RE-INTRODUCED
     Route: 065
  8. LEVOTHYROXINE. [Suspect]
     Active Substance: LEVOTHYROXINE
     Route: 065
  9. DIRETIF 10 MG/ML SOLUZIONE INIETTABILE [Suspect]
     Active Substance: FUROSEMIDE
     Route: 065
  10. ROSUVASTATIN. [Suspect]
     Active Substance: ROSUVASTATIN
     Route: 065
  11. DILATREND [Suspect]
     Active Substance: CARVEDILOL
     Dosage: 12.5MG AT THE MORNING AND 6.25 MG AT THE EVENING
     Route: 065
  12. DILATREND [Suspect]
     Active Substance: CARVEDILOL
     Route: 065
  13. SPIRONOLACTONE. [Suspect]
     Active Substance: SPIRONOLACTONE
     Route: 065
  14. IRBESARTAN. [Suspect]
     Active Substance: IRBESARTAN
     Indication: PRODUCT USED FOR UNKNOWN INDICATION
     Dosage: DOSE RE-INTRODUCED
     Route: 065
  15. DILATREND [Suspect]
     Active Substance: CARVEDILOL
     Route: 065
  16. ROSUVASTATIN. [Suspect]
     Active Substance: ROSUVASTATIN
     Indication: PRODUCT USED FOR UNKNOWN INDICATION
     Route: 065
  17. LEVOTHYROXINE. [Suspect]
     Active Substance: LEVOTHYROXINE
     Route: 065
  18. SPIRONOLACTONE. [Suspect]
     Active Substance: SPIRONOLACTONE
     Indication: PRODUCT USED FOR UNKNOWN INDICATION
     Route: 065
  19. LEVOTHYROXINE. [Suspect]
     Active Substance: LEVOTHYROXINE
     Indication: PRODUCT USED FOR UNKNOWN INDICATION
     Route: 065
  20. DILATREND [Suspect]
     Active Substance: CARVEDILOL
     Dosage: 25 MG, BID
     Route: 065
  21. DILATREND [Suspect]
     Active Substance: CARVEDILOL
     Dosage: AT THE MORNING
     Route: 065
  22. DILATREND [Suspect]
     Active Substance: CARVEDILOL
     Route: 065
  23. ROSUVASTATIN. [Suspect]
     Active Substance: ROSUVASTATIN
     Route: 065
  24. ROSUVASTATIN. [Suspect]
     Active Substance: ROSUVASTATIN
     Route: 065
  25. DILATREND [Suspect]
     Active Substance: CARVEDILOL
     Route: 065
  26. RIVAROXABAN [Suspect]
     Active Substance: RIVAROXABAN
     Indication: PRODUCT USED FOR UNKNOWN INDICATION
     Route: 065

REACTIONS (31)
  - Blood pressure increased [Unknown]
  - Pulmonary arterial pressure abnormal [Unknown]
  - Oedema peripheral [Unknown]
  - Type 2 diabetes mellitus [Unknown]
  - Hypertension [Unknown]
  - C-reactive protein abnormal [Unknown]
  - Thyroiditis [Unknown]
  - Left ventricular dilatation [Unknown]
  - Ejection fraction decreased [Unknown]
  - Dyspnoea [Unknown]
  - Electrocardiogram QRS complex abnormal [Unknown]
  - Aortic aneurysm [Unknown]
  - Atrial fibrillation [Unknown]
  - Cardiomegaly [Unknown]
  - Tricuspid valve incompetence [Unknown]
  - Obstructive airways disorder [Unknown]
  - Conduction disorder [Unknown]
  - Bundle branch block left [Unknown]
  - Mitral valve incompetence [Unknown]
  - Ventricular hypokinesia [Unknown]
  - Fall [Unknown]
  - Bundle branch block right [Unknown]
  - Cardiac failure chronic [Recovering/Resolving]
  - Oxygen saturation increased [Unknown]
  - N-terminal prohormone brain natriuretic peptide abnormal [Unknown]
  - Dyslipidaemia [Unknown]
  - Fractured coccyx [Unknown]
  - Goitre [Unknown]
  - Blood thyroid stimulating hormone abnormal [Unknown]
  - Chronic obstructive pulmonary disease [Unknown]
  - Brain natriuretic peptide abnormal [Unknown]

NARRATIVE: CASE EVENT DATE: 20150722
